FAERS Safety Report 13618900 (Version 2)
Quarter: 2017Q3

REPORT INFORMATION
  Report Type: Spontaneous
  Country: US (occurrence: US)
  Receive Date: 20170606
  Receipt Date: 20170821
  Transmission Date: 20171127
  Serious: Yes (Other)
  Sender: FDA-Public Use
  Company Number: US-PFIZER INC-2017244146

PATIENT
  Age: 67 Year
  Sex: Female

DRUGS (7)
  1. ELIDEL [Concomitant]
     Active Substance: PIMECROLIMUS
     Dosage: UNK
  2. XELJANZ XR [Suspect]
     Active Substance: TOFACITINIB CITRATE
     Indication: RHEUMATOID ARTHRITIS
     Dosage: 11 MG, 1X/DAY
     Route: 048
  3. CONTRAVE [Concomitant]
     Active Substance: BUPROPION HYDROCHLORIDE\NALTREXONE HYDROCHLORIDE
     Dosage: [BUPROPION HYDROCHLORIDE-90MG/ NALTREXONE HYDROCHLORIDE-8MG] DAILY
  4. METOPROLOL. [Concomitant]
     Active Substance: METOPROLOL
     Dosage: 50 MG 1/2 TABLET DAILY
  5. CLEOCIN [Concomitant]
     Active Substance: CLINDAMYCIN PHOSPHATE
     Dosage: UNK
  6. TRIAMCINOLONE [Concomitant]
     Active Substance: TRIAMCINOLONE
     Dosage: UNK
  7. LOSARTAN AND HYDROCHLOROTHIAZIDE [Concomitant]
     Active Substance: HYDROCHLOROTHIAZIDE\LOSARTAN POTASSIUM
     Dosage: 1 DF, DAILY [HYDROCHLOROTHIAZIDE-25MG/ LOSARTAN POTASSIUM-40MG]

REACTIONS (17)
  - Headache [Unknown]
  - Weight increased [Unknown]
  - Fatigue [Unknown]
  - Rhinorrhoea [Unknown]
  - Night sweats [Unknown]
  - C-reactive protein increased [Unknown]
  - Constipation [Unknown]
  - Synovitis [Unknown]
  - Oedema peripheral [Unknown]
  - Eye pruritus [Unknown]
  - Dizziness [Unknown]
  - Arthralgia [Unknown]
  - Joint swelling [Recovering/Resolving]
  - Deafness [Unknown]
  - Nausea [Unknown]
  - Joint range of motion decreased [Unknown]
  - Pedal pulse decreased [Unknown]
